FAERS Safety Report 9814404 (Version 1)
Quarter: 2014Q1

REPORT INFORMATION
  Report Type: Spontaneous
  Country: US (occurrence: US)
  Receive Date: 20140113
  Receipt Date: 20140113
  Transmission Date: 20141002
  Serious: No
  Sender: FDA-Public Use
  Company Number: US-TEVA-455620USA

PATIENT
  Age: 23 Year
  Sex: Female
  Weight: 84.9 kg

DRUGS (3)
  1. FENTORA [Suspect]
     Indication: BREAKTHROUGH PAIN
     Dates: start: 201202, end: 201302
  2. FENTORA [Suspect]
     Indication: PAIN
  3. VICODIN [Concomitant]
     Indication: PAIN
     Dates: start: 201202

REACTIONS (4)
  - Dental caries [Not Recovered/Not Resolved]
  - Toothache [Not Recovered/Not Resolved]
  - Tooth fracture [Not Recovered/Not Resolved]
  - Off label use [Unknown]
